FAERS Safety Report 7632706-5 (Version None)
Quarter: 2011Q3

REPORT INFORMATION
  Report Type: 
  Country: None (occurrence: None)
  Receive Date: 20110725
  Receipt Date: 20110714
  Transmission Date: 20111222
  Serious: Yes (Death, Other)
  Sender: FDA-Public Use
  Company Number: CA-NAPPMUNDI-CAN-2011-0002106

PATIENT
  Age: 25 Year
  Sex: Male

DRUGS (4)
  1. RHOVANE [Suspect]
     Indication: SLEEP DISORDER
     Dosage: UNK
  2. DIAZEPAM [Suspect]
     Indication: POST-TRAUMATIC STRESS DISORDER
     Dosage: UNK
  3. CLONIDINE [Suspect]
     Indication: POST-TRAUMATIC STRESS DISORDER
     Dosage: UNK
     Route: 065
  4. OXYCODONE HCL [Suspect]
     Indication: PRODUCT USED FOR UNKNOWN INDICATION
     Dosage: UNK
     Route: 065

REACTIONS (6)
  - ANTISOCIAL BEHAVIOUR [None]
  - OVERDOSE [None]
  - EMOTIONAL DISORDER [None]
  - DRUG DEPENDENCE [None]
  - SUBSTANCE ABUSE [None]
  - SUICIDAL BEHAVIOUR [None]
